FAERS Safety Report 23897471 (Version 1)
Quarter: 2024Q2

REPORT INFORMATION
  Report Type: Report from Study
  Country: US (occurrence: US)
  Receive Date: 20240524
  Receipt Date: 20240524
  Transmission Date: 20240716
  Serious: Yes (Hospitalization, Other)
  Sender: FDA-Public Use
  Company Number: US-ABBVIE-5772242

PATIENT
  Sex: Female

DRUGS (1)
  1. HUMIRA [Suspect]
     Active Substance: ADALIMUMAB
     Indication: Colitis ulcerative
     Dosage: FORM STRENGTH: 40 MILLIGRAM?CITRATE FREE
     Route: 058
     Dates: start: 20190101

REACTIONS (7)
  - Intestinal calcification [Unknown]
  - Colitis ulcerative [Unknown]
  - Pain [Unknown]
  - Haemorrhoidal haemorrhage [Unknown]
  - Gastrointestinal wall thickening [Unknown]
  - Gluten sensitivity [Unknown]
  - Dairy intolerance [Unknown]
